FAERS Safety Report 24756876 (Version 1)
Quarter: 2024Q4

REPORT INFORMATION
  Report Type: Spontaneous
  Country: US (occurrence: US)
  Receive Date: 20241220
  Receipt Date: 20241220
  Transmission Date: 20250115
  Serious: No
  Sender: SANDOZ
  Company Number: US-SANDOZ-SDZ2024US103232

PATIENT
  Sex: Male

DRUGS (2)
  1. LATANOPROST [Suspect]
     Active Substance: LATANOPROST
     Indication: Product used for unknown indication
     Dosage: UNK
     Route: 065
  2. SYSTANE COMPLETE [Concomitant]
     Active Substance: PROPYLENE GLYCOL
     Indication: Product used for unknown indication
     Dosage: UNK (SYSTANE COMPLETE PF)
     Route: 065

REACTIONS (1)
  - Ocular hyperaemia [Unknown]
